FAERS Safety Report 23842876 (Version 1)
Quarter: 2024Q2

REPORT INFORMATION
  Report Type: Spontaneous
  Country: ZA (occurrence: None)
  Receive Date: 20240510
  Receipt Date: 20240510
  Transmission Date: 20240716
  Serious: Yes (Hospitalization)
  Sender: FDA-Public Use
  Company Number: 2024A105657

PATIENT
  Age: 26298 Day
  Sex: Female

DRUGS (8)
  1. BUDESONIDE\FORMOTEROL [Suspect]
     Active Substance: BUDESONIDE\FORMOTEROL
     Indication: Asthma
     Dosage: 160 UG 120 DOSE, UNKNOWN UNKNOWN
     Route: 055
  2. PANTOCID [Concomitant]
     Indication: Ulcer
  3. TIOTROPIUM BROMIDE [Concomitant]
     Active Substance: TIOTROPIUM BROMIDE
     Indication: Emphysema
     Route: 055
  4. SERDEP [Concomitant]
     Indication: Depression
  5. FORVENT COMPLETE [Concomitant]
     Indication: Emphysema
     Route: 055
  6. CHOLESTYRAMINE [Concomitant]
     Active Substance: CHOLESTYRAMINE
     Indication: Blood cholesterol
  7. TIORES [Concomitant]
     Indication: Emphysema
     Route: 055
  8. BUDESONIDE\FORMOTEROL FUMARATE [Concomitant]
     Active Substance: BUDESONIDE\FORMOTEROL FUMARATE
     Indication: Asthma
     Route: 055

REACTIONS (2)
  - Frequent bowel movements [Unknown]
  - Asthenia [Unknown]
